FAERS Safety Report 9737924 (Version 1)
Quarter: 2013Q4

REPORT INFORMATION
  Report Type: Spontaneous
  Country: JP (occurrence: JP)
  Receive Date: 20131208
  Receipt Date: 20131208
  Transmission Date: 20140711
  Serious: Yes (Other)
  Sender: FDA-Public Use
  Company Number: JP-TEVA-447771ISR

PATIENT
  Age: 23 Year
  Sex: Female

DRUGS (10)
  1. ACICLOVIR [Suspect]
     Indication: HERPES ZOSTER
     Dosage: FROM DAY 7 TO 35
     Route: 065
  2. ACICLOVIR [Suspect]
     Indication: HERPES VIRUS INFECTION
     Dosage: 750 MILLIGRAM DAILY; FOR 7 DAYS
     Route: 041
  3. ACICLOVIR [Suspect]
     Dosage: 200 MILLIGRAM DAILY; FROM DAY 120 TO 183
     Route: 048
  4. CYCLOPHOSPHAMIDE [Concomitant]
     Indication: BONE MARROW CONDITIONING REGIMEN
     Dosage: 60 MG/KG/DAY FROM DAYS -4 TO -3
     Route: 065
  5. METHOTREXATE [Concomitant]
     Indication: PROPHYLAXIS AGAINST GRAFT VERSUS HOST DISEASE
     Route: 065
  6. TACROLIMUS [Concomitant]
     Indication: PROPHYLAXIS AGAINST GRAFT VERSUS HOST DISEASE
     Dosage: 0.4MG FROM DAY 1 TO 183
     Route: 065
  7. PREDNISOLONE [Concomitant]
     Indication: ACUTE GRAFT VERSUS HOST DISEASE
     Dosage: 1 MG/KG
     Route: 065
  8. LANSOPRAZOLE [Concomitant]
     Dosage: FROM DAY 14 TO 183
     Route: 065
  9. VORICONAZOLE [Concomitant]
     Dosage: FROM DAY 120 TO 183
     Route: 065
  10. REBAMIPIDE [Concomitant]
     Dosage: FROM DAY 86 TO 183
     Route: 065

REACTIONS (1)
  - Drug-induced liver injury [Recovered/Resolved]
